FAERS Safety Report 19677179 (Version 1)
Quarter: 2021Q3

REPORT INFORMATION
  Report Type: Report from Study
  Country: JP (occurrence: JP)
  Receive Date: 20210810
  Receipt Date: 20210810
  Transmission Date: 20211014
  Serious: Yes (Hospitalization)
  Sender: FDA-Public Use
  Company Number: JP-ROCHE-2798960

PATIENT
  Age: 73 Year
  Sex: Female
  Weight: 42.3 kg

DRUGS (8)
  1. GASMOTIN [Concomitant]
     Active Substance: MOSAPRIDE CITRATE
     Indication: GASTRITIS
     Dosage: THE BEGINNING OF DOSAGE DAY: BEFORE ACQUIRING AGREEMENT
     Route: 048
  2. HEPARINOID [Concomitant]
     Active Substance: CHONDROITIN SULFATE (BOVINE)
     Indication: DRY SKIN PROPHYLAXIS
     Dosage: THE PROPER QUANTITY, SINGLE USE, AND THE BEGINNING OF DOSAGE DAY: BEFORE ?ACQUIRING AGREEMENT
     Route: 061
  3. SENNOSIDE [Concomitant]
     Active Substance: SENNOSIDES
     Indication: CONSTIPATION
     Dosage: SINGLE USE AND THE BEGINNING OF DOSAGE DAY: BEFORE ACQUIRING AGREEMENT
     Route: 048
  4. DEXAMETHASONE. [Concomitant]
     Active Substance: DEXAMETHASONE
     Indication: STOMATITIS
     Dosage: PROPER QUANTITY AND SINGLE USE
     Dates: start: 20200622
  5. PRIMPERAN [Concomitant]
     Active Substance: METOCLOPRAMIDE HYDROCHLORIDE
     Indication: NAUSEA
     Dosage: SINGLE USE AND THE BEGINNING OF DOSAGE DAY: BEFORE ACQUIRING AGREEMENT
     Route: 048
  6. EURAX [Concomitant]
     Active Substance: CROTAMITON
     Indication: RASH MACULO-PAPULAR
     Dosage: PROPER QUANTITY AND SINGLE USE
     Route: 061
     Dates: start: 20200511
  7. ATEZOLIZUMAB. [Suspect]
     Active Substance: ATEZOLIZUMAB
     Indication: OESOPHAGEAL CARCINOMA
     Route: 042
     Dates: start: 20200420
  8. LANSOPRAZOLE. [Concomitant]
     Active Substance: LANSOPRAZOLE
     Indication: GASTRITIS
     Dosage: THE BEGINNING OF DOSAGE DAY: BEFORE ACQUIRING AGREEMENT
     Route: 048

REACTIONS (2)
  - Lung disorder [Recovering/Resolving]
  - Herpes zoster [Recovered/Resolved]

NARRATIVE: CASE EVENT DATE: 20210312
